FAERS Safety Report 17827984 (Version 1)
Quarter: 2020Q2

REPORT INFORMATION
  Report Type: Report from Study
  Country: US (occurrence: US)
  Receive Date: 20200527
  Receipt Date: 20200527
  Transmission Date: 20200714
  Serious: Yes (Hospitalization, Other)
  Sender: FDA-Public Use
  Company Number: NVSC2020US006300

PATIENT
  Age: 80 Year
  Sex: Female
  Weight: 56.69 kg

DRUGS (2)
  1. TABRECTA [Suspect]
     Active Substance: CAPMATINIB
     Indication: LUNG NEOPLASM MALIGNANT
     Dosage: 200 MG, BID
     Route: 048
     Dates: start: 20191105, end: 20200104
  2. TABRECTA [Suspect]
     Active Substance: CAPMATINIB
     Dosage: 200 MG, BID
     Route: 048
     Dates: end: 20200309

REACTIONS (6)
  - Lung neoplasm malignant [Unknown]
  - Fall [Unknown]
  - Pleural effusion [Recovered/Resolved with Sequelae]
  - Back pain [Recovering/Resolving]
  - Malignant neoplasm progression [Unknown]
  - Metastases to spine [Unknown]

NARRATIVE: CASE EVENT DATE: 20200108
